FAERS Safety Report 8049606-1 (Version None)
Quarter: 2012Q1

REPORT INFORMATION
  Report Type: 
  Country: None (occurrence: None)
  Receive Date: 20120117
  Receipt Date: 20120112
  Transmission Date: 20120608
  Serious: Yes (Hospitalization, Other)
  Sender: FDA-Public Use
  Company Number: BR-PFIZER INC-2012010325

PATIENT
  Age: 71 Year
  Sex: Male

DRUGS (6)
  1. XALATAN [Suspect]
     Dosage: 3 UG (TWO DROPS), ONCE DAILY
     Route: 047
     Dates: start: 20110124
  2. OLMESARTAN MEDOXOMIL [Suspect]
     Dosage: 20 MG (ONE TABLET), ONCE DAILY
     Route: 048
     Dates: start: 20101206, end: 20111201
  3. LIPITOR [Suspect]
     Indication: BLOOD CHOLESTEROL
     Dosage: 10 MG (ONE TABLET), ONCE DAILY
     Route: 048
     Dates: start: 20111006
  4. VASTAREL [Concomitant]
     Dosage: UNK
     Dates: start: 20110101
  5. HALDOL [Concomitant]
     Dosage: UNK
     Dates: start: 20070101
  6. CARVEDILOL [Concomitant]
     Dosage: UNK
     Dates: start: 20020101

REACTIONS (2)
  - MEDICAL DEVICE COMPLICATION [None]
  - CARDIAC FAILURE [None]
